FAERS Safety Report 23611177 (Version 1)
Quarter: 2024Q1

REPORT INFORMATION
  Report Type: Spontaneous
  Country: DE (occurrence: DE)
  Receive Date: 20240308
  Receipt Date: 20240308
  Transmission Date: 20240410
  Serious: Yes (Life-Threatening, Other)
  Sender: FDA-Public Use
  Company Number: DE-EMA-DD-20240219-7482645-111814

PATIENT
  Age: 69 Year
  Sex: Male

DRUGS (8)
  1. AZATHIOPRINE [Suspect]
     Active Substance: AZATHIOPRINE
     Indication: Pemphigus
     Dosage: 150.000MG QD
     Route: 065
     Dates: start: 201012, end: 201110
  2. CYCLOPHOSPHAMIDE [Suspect]
     Active Substance: CYCLOPHOSPHAMIDE
     Indication: Pemphigus
     Dosage: 3.6 GRAM CUMULATIVE DOSE
     Route: 065
     Dates: start: 201303
  3. MYCOPHENOLATE MOFETIL [Suspect]
     Active Substance: MYCOPHENOLATE MOFETIL
     Dosage: 2.000G QD
     Route: 065
     Dates: start: 201111, end: 201302
  4. MYCOPHENOLATE MOFETIL [Suspect]
     Active Substance: MYCOPHENOLATE MOFETIL
     Indication: Pemphigus
     Dosage: 2.500G QD
     Route: 065
     Dates: start: 201304, end: 201803
  5. PREDNISOLONE [Suspect]
     Active Substance: PREDNISOLONE
     Indication: Pemphigus
     Dosage: 1 MG/KG/BODY WEIGHT (BW) 5-7.5 MG/DAY
     Route: 065
     Dates: start: 2010
  6. PREDNISOLONE [Suspect]
     Active Substance: PREDNISOLONE
     Dosage: 1 MG/KG/BODY WEIGHT (BW) 5-7.5 MG/DAY
     Route: 065
     Dates: start: 2010
  7. RITUXIMAB [Suspect]
     Active Substance: RITUXIMAB
     Dosage: ONCE WEEKLY FOR 3 WEEKS
     Route: 065
     Dates: start: 201404
  8. RITUXIMAB [Suspect]
     Active Substance: RITUXIMAB
     Indication: Pemphigus
     Dosage: UNK
     Route: 065
     Dates: start: 201506, end: 201512

REACTIONS (1)
  - Oropharyngeal squamous cell carcinoma [Recovered/Resolved]

NARRATIVE: CASE EVENT DATE: 20180101
